FAERS Safety Report 7262984-6 (Version None)
Quarter: 2011Q1

REPORT INFORMATION
  Report Type: 
  Country: None (occurrence: None)
  Receive Date: 20110130
  Receipt Date: 20101013
  Transmission Date: 20110831
  Serious: No
  Sender: FDA-Public Use
  Company Number: US-ABBOTT-10P-163-0678921-00

PATIENT
  Sex: Female
  Weight: 81.72 kg

DRUGS (6)
  1. LEVOXYL [Concomitant]
     Indication: HYPERTHYROIDISM
     Route: 048
  2. OMEPRAZOLE [Concomitant]
     Indication: PRODUCT USED FOR UNKNOWN INDICATION
  3. PRISTIQ [Concomitant]
     Indication: DEPRESSION
     Dosage: WEANING OFF AS OF 10-OCT-2010
     Route: 048
  4. HUMIRA [Suspect]
     Indication: RHEUMATOID ARTHRITIS
     Dates: start: 20080101, end: 20100701
  5. HUMIRA [Suspect]
     Dates: start: 20100701, end: 20101010
  6. HUMALOG [Concomitant]
     Indication: DIABETES MELLITUS
     Dosage: CONTINUOUS PUMP
     Route: 058

REACTIONS (1)
  - RHEUMATOID ARTHRITIS [None]
